FAERS Safety Report 8436991-1 (Version None)
Quarter: 2012Q2

REPORT INFORMATION
  Report Type: 
  Country: None (occurrence: None)
  Receive Date: 20120614
  Receipt Date: 20120608
  Transmission Date: 20120825
  Serious: Yes (Other)
  Sender: FDA-Public Use
  Company Number: US-ELI_LILLY_AND_COMPANY-US201206003855

PATIENT
  Age: 58 Year
  Sex: Male

DRUGS (2)
  1. ANGIOMAX [Concomitant]
     Indication: THROMBOSIS PROPHYLAXIS
  2. EFFIENT [Suspect]
     Indication: PERCUTANEOUS CORONARY INTERVENTION
     Dosage: 60 MG, LOADING DOSE
     Dates: start: 20120608

REACTIONS (3)
  - VOMITING [None]
  - THROMBOSIS IN DEVICE [None]
  - HYPOTENSION [None]
